FAERS Safety Report 16910013 (Version 1)
Quarter: 2019Q4

REPORT INFORMATION
  Report Type: Spontaneous
  Country: FR (occurrence: FR)
  Receive Date: 20191011
  Receipt Date: 20191011
  Transmission Date: 20200122
  Serious: Yes (Hospitalization, Disabling)
  Sender: FDA-Public Use
  Company Number: FR-009507513-1910FRA007929

PATIENT
  Age: 45 Year
  Sex: Male
  Weight: 68.5 kg

DRUGS (3)
  1. KEYTRUDA [Suspect]
     Active Substance: PEMBROLIZUMAB
     Indication: MALIGNANT MELANOMA
     Dosage: 1 DOSAGE FORM, ONCE
     Route: 041
     Dates: start: 20190222, end: 20190614
  2. OPDIVO [Suspect]
     Active Substance: NIVOLUMAB
     Indication: MALIGNANT MELANOMA
     Dosage: 1 DOSAGE FORM, ONCE; STRENGTH: 10 MG/ML
     Route: 041
     Dates: start: 20190816, end: 20190816
  3. YERVOY [Suspect]
     Active Substance: IPILIMUMAB
     Indication: MALIGNANT MELANOMA
     Dosage: 1 DOSAGE FORM, ONCE; STRENGTH: 5 MG/ML
     Route: 041
     Dates: start: 20190816, end: 20190816

REACTIONS (2)
  - Gastritis [Recovered/Resolved]
  - Guillain-Barre syndrome [Recovering/Resolving]

NARRATIVE: CASE EVENT DATE: 20190901
